FAERS Safety Report 12970565 (Version 1)
Quarter: 2016Q4

REPORT INFORMATION
  Report Type: Spontaneous
  Country: US (occurrence: US)
  Receive Date: 20161123
  Receipt Date: 20161123
  Transmission Date: 20170207
  Serious: Yes (Hospitalization)
  Sender: FDA-Public Use
  Company Number: US-ASTRAZENECA-2016SF22639

PATIENT
  Age: 33 Month
  Sex: Male
  Weight: 16.3 kg

DRUGS (2)
  1. PULMICORT RESPULES [Suspect]
     Active Substance: BUDESONIDE
     Indication: CROUP INFECTIOUS
     Route: 055
     Dates: start: 201610, end: 201610
  2. UNSPECIFIED [Concomitant]
     Active Substance: UNSPECIFIED INGREDIENT

REACTIONS (7)
  - Product use issue [Unknown]
  - Respiratory arrest [Unknown]
  - Crying [Unknown]
  - Off label use [Unknown]
  - Screaming [Unknown]
  - Adenoidal disorder [Unknown]
  - Cyanosis [Unknown]

NARRATIVE: CASE EVENT DATE: 201610
